FAERS Safety Report 10280424 (Version 1)
Quarter: 2014Q3

REPORT INFORMATION
  Report Type: Spontaneous
  Country: US (occurrence: None)
  Receive Date: 20140702
  Receipt Date: 20140702
  Transmission Date: 20150326
  Serious: Yes (Disabling, Other)
  Sender: FDA-Public Use
  Company Number: 201406090

PATIENT
  Age: 43 Year
  Sex: Male

DRUGS (1)
  1. TESTIM [Suspect]
     Active Substance: TESTOSTERONE
     Indication: BLOOD TESTOSTERONE DECREASED
     Dates: start: 20100625

REACTIONS (10)
  - Anhedonia [None]
  - Pulmonary embolism [None]
  - Pain [None]
  - Thrombosis [None]
  - Emotional distress [None]
  - Economic problem [None]
  - Injury [None]
  - Anxiety [None]
  - Sexual relationship change [None]
  - Disability [None]

NARRATIVE: CASE EVENT DATE: 2010
